FAERS Safety Report 4874530-2 (Version None)
Quarter: 2006Q1

REPORT INFORMATION
  Report Type: 
  Country: None (occurrence: None)
  Receive Date: 20060104
  Receipt Date: 20060104
  Transmission Date: 20060701
  Serious: Yes (Disabling)
  Sender: FDA-Public Use
  Company Number: None

PATIENT
  Sex: Female
  Weight: 63.5036 kg

DRUGS (2)
  1. LIPITOR [Suspect]
     Indication: BLOOD CHOLESTEROL INCREASED
     Dosage: 10 MG, DAILY MOUTH
     Route: 048
     Dates: start: 19970101, end: 20020801
  2. LESCOL [Suspect]
     Indication: DRUG INTOLERANCE
     Dosage: 80 MG, DAILY MOUTH
     Route: 048
     Dates: start: 20021101, end: 20041001

REACTIONS (3)
  - FOOT FRACTURE [None]
  - MUSCLE SPASMS [None]
  - MUSCULAR WEAKNESS [None]
